FAERS Safety Report 14528423 (Version 5)
Quarter: 2018Q2

REPORT INFORMATION
  Report Type: Report from Study
  Country: DE (occurrence: DE)
  Receive Date: 20180214
  Receipt Date: 20180625
  Transmission Date: 20180711
  Serious: Yes (Hospitalization, Other)
  Sender: FDA-Public Use
  Company Number: DE-ROCHE-1612261

PATIENT
  Age: 75 Year
  Sex: Male
  Weight: 81 kg

DRUGS (17)
  1. ROACTEMRA [Suspect]
     Active Substance: TOCILIZUMAB
     Indication: VASCULITIS
     Route: 058
     Dates: start: 20150706
  2. DENOSUMAB [Suspect]
     Active Substance: DENOSUMAB
     Indication: OSTEOPOROSIS
     Route: 058
     Dates: start: 201405
  3. ROACTEMRA [Suspect]
     Active Substance: TOCILIZUMAB
     Route: 058
     Dates: start: 20180414
  4. PANTOPRAZOLE [Concomitant]
     Active Substance: PANTOPRAZOLE
  5. FRAXIPARIN [Suspect]
     Active Substance: NADROPARIN CALCIUM
     Indication: VENOUS THROMBOSIS LIMB
     Route: 065
     Dates: start: 201507
  6. ROACTEMRA [Suspect]
     Active Substance: TOCILIZUMAB
     Indication: RHEUMATOID ARTHRITIS
     Route: 058
     Dates: start: 20140601, end: 201506
  7. ROACTEMRA [Suspect]
     Active Substance: TOCILIZUMAB
     Route: 058
     Dates: start: 20180131
  8. ROACTEMRA [Suspect]
     Active Substance: TOCILIZUMAB
     Route: 058
  9. ROACTEMRA [Suspect]
     Active Substance: TOCILIZUMAB
     Route: 058
     Dates: start: 201704, end: 20171025
  10. CORTISONE ACETATE. [Concomitant]
     Active Substance: CORTISONE ACETATE
     Dosage: DAYS
     Route: 065
  11. ROACTEMRA [Suspect]
     Active Substance: TOCILIZUMAB
     Route: 058
  12. LISIHEXAL [Concomitant]
     Active Substance: LISINOPRIL
     Route: 065
  13. ROACTEMRA [Suspect]
     Active Substance: TOCILIZUMAB
     Indication: MYALGIA
     Route: 058
  14. ESCITALOPRAM [Concomitant]
     Active Substance: ESCITALOPRAM OXALATE
     Route: 065
  15. CLEXANE [Suspect]
     Active Substance: ENOXAPARIN SODIUM
     Indication: VENOUS THROMBOSIS LIMB
     Route: 065
     Dates: start: 201507
  16. QUETIAPIN [Suspect]
     Active Substance: QUETIAPINE
     Indication: PRODUCT USED FOR UNKNOWN INDICATION
     Route: 065
  17. COLECALCIFEROL [Suspect]
     Active Substance: CHOLECALCIFEROL
     Indication: OSTEOPOROSIS
     Route: 048
     Dates: start: 201204

REACTIONS (20)
  - Soft tissue disorder [Recovered/Resolved]
  - Off label use [Unknown]
  - Autoimmune disorder [Unknown]
  - Platelet count decreased [Unknown]
  - Impaired healing [Recovered/Resolved]
  - Suture rupture [Recovered/Resolved]
  - Rash erythematous [Unknown]
  - Sepsis [Recovering/Resolving]
  - Depression [Not Recovered/Not Resolved]
  - Venous thrombosis limb [Not Recovered/Not Resolved]
  - Hyperaesthesia [Unknown]
  - Lymphoedema [Recovered/Resolved]
  - Erysipelas [Recovering/Resolving]
  - Fall [Unknown]
  - Sleep disorder [Unknown]
  - Lymphocele [Recovered/Resolved]
  - Prostate cancer [Not Recovered/Not Resolved]
  - Dysuria [Unknown]
  - Product use in unapproved indication [Unknown]
  - Inappropriate schedule of drug administration [Unknown]

NARRATIVE: CASE EVENT DATE: 201407
